FAERS Safety Report 21695759 (Version 1)
Quarter: 2022Q4

REPORT INFORMATION
  Report Type: Spontaneous
  Country: US (occurrence: None)
  Receive Date: 20221206
  Receipt Date: 20221206
  Transmission Date: 20230113
  Serious: No
  Sender: FDA-Public Use
  Company Number: None

PATIENT
  Age: 80 Year
  Sex: Female
  Weight: 49.9 kg

DRUGS (6)
  1. ANASTROZOLE [Suspect]
     Active Substance: ANASTROZOLE
     Indication: Breast cancer
     Dosage: FREQUENCY : DAILY;?
     Route: 048
     Dates: start: 202205
  2. ALPRAZOLAM [Concomitant]
     Active Substance: ALPRAZOLAM
  3. DRONABINOL [Concomitant]
     Active Substance: DRONABINOL
  4. ACETAMINOPHEN\HYDROCODONE [Concomitant]
     Active Substance: ACETAMINOPHEN\HYDROCODONE
  5. MEGESTROL [Concomitant]
     Active Substance: MEGESTROL
  6. TRAMADOL [Concomitant]
     Active Substance: TRAMADOL

REACTIONS (1)
  - COVID-19 [None]
